FAERS Safety Report 19436626 (Version 1)
Quarter: 2021Q2

REPORT INFORMATION
  Report Type: Spontaneous
  Country: US (occurrence: US)
  Receive Date: 20210618
  Receipt Date: 20210618
  Transmission Date: 20210717
  Serious: Yes (Death, Hospitalization)
  Sender: FDA-Public Use
  Company Number: US-MYLANLABS-2021M1035985

PATIENT
  Age: 40 Year
  Sex: Female

DRUGS (10)
  1. HEPARIN [Concomitant]
     Active Substance: HEPARIN SODIUM
     Indication: ANTICOAGULANT THERAPY
     Route: 065
  2. EPTIFIBATIDE. [Suspect]
     Active Substance: EPTIFIBATIDE
     Indication: ACUTE MYOCARDIAL INFARCTION
     Route: 022
  3. ALTEPLASE. [Concomitant]
     Active Substance: ALTEPLASE
     Indication: CORONARY ARTERY OCCLUSION
     Dosage: 5 MILLIGRAM ADMINISTERED VIA CATHETER
     Route: 065
  4. SODIUM NITROPRUSSIDE. [Suspect]
     Active Substance: SODIUM NITROPRUSSIDE
     Indication: ACUTE MYOCARDIAL INFARCTION
     Route: 022
  5. CLOPIDOGREL [Concomitant]
     Active Substance: CLOPIDOGREL BISULFATE
     Indication: ANTIPLATELET THERAPY
     Dosage: 600 MILLIGRAM
     Route: 048
  6. EPINEPHRINE. [Suspect]
     Active Substance: EPINEPHRINE
     Indication: ACUTE MYOCARDIAL INFARCTION
     Route: 022
  7. ALTEPLASE. [Concomitant]
     Active Substance: ALTEPLASE
     Dosage: 5 MILLIGRAM
     Route: 022
  8. BIVALIRUDIN. [Concomitant]
     Active Substance: BIVALIRUDIN
     Indication: CORONARY ARTERY OCCLUSION
     Route: 042
  9. NOREPINEPHRINE. [Suspect]
     Active Substance: NOREPINEPHRINE
     Indication: CARDIOGENIC SHOCK
     Route: 065
  10. ASPIRIN                            /00002701/ [Concomitant]
     Active Substance: ASPIRIN
     Indication: ANTIPLATELET THERAPY
     Dosage: 325 MILLIGRAM
     Route: 065

REACTIONS (1)
  - Drug ineffective [Fatal]
